FAERS Safety Report 9105616 (Version 3)
Quarter: 2013Q2

REPORT INFORMATION
  Report Type: Report from Study
  Country: PR (occurrence: US)
  Receive Date: 20130220
  Receipt Date: 20130418
  Transmission Date: 20140414
  Serious: Yes (Other)
  Sender: FDA-Public Use
  Company Number: PHEH2013US004205

PATIENT
  Sex: Female
  Weight: 54.42 kg

DRUGS (6)
  1. GILENYA [Suspect]
     Indication: MULTIPLE SCLEROSIS
     Dosage: 0.5 MG, QD
     Route: 048
     Dates: start: 20121022
  2. BACLOFEN [Concomitant]
     Dosage: 10 MG, UNK
     Route: 048
  3. NEURONTIN [Concomitant]
     Dosage: 600 MG, UNK
     Route: 048
  4. PREDNISONE [Concomitant]
     Dosage: 10 MG, UNK
     Route: 048
  5. SYNTHROID [Concomitant]
     Dosage: 112 UG, UNK
     Route: 048
  6. WELLBUTRIN XL [Concomitant]
     Dosage: 300 MG, UNK
     Route: 048

REACTIONS (3)
  - Thyroid cancer [Unknown]
  - Thyroid neoplasm [Unknown]
  - Chest pain [Unknown]
